FAERS Safety Report 6425852 (Version 2)
Quarter: 2018Q4

REPORT INFORMATION
  Report Type: Spontaneous
  Country: GB (occurrence: GB)
  Receive Date: 20070924
  Receipt Date: 20181210
  Transmission Date: 20190205
  Serious: Yes (Death, Other)
  Sender: FDA-Public Use
  Company Number: GB-ASTRAZENECA-2007GB01926

PATIENT
  Age: 62 Year
  Sex: Male

DRUGS (2)
  1. PROPOFOL. [Suspect]
     Active Substance: PROPOFOL
     Indication: SEDATION
     Dosage: 1.5 MG/ML
     Route: 042
  2. REMIFENTANIL HYDROCHLORIDE. [Suspect]
     Active Substance: REMIFENTANIL HYDROCHLORIDE
     Indication: SEDATION
     Dosage: 5 MG/ML
     Route: 042

REACTIONS (4)
  - Brain injury [Fatal]
  - Sedation [Fatal]
  - Cardiac arrest [Fatal]
  - Apnoea [Fatal]
